FAERS Safety Report 15003644 (Version 23)
Quarter: 2022Q1

REPORT INFORMATION
  Report Type: Spontaneous
  Country: PL (occurrence: PL)
  Receive Date: 20180613
  Receipt Date: 20220317
  Transmission Date: 20220423
  Serious: Yes (Hospitalization, Other)
  Sender: FDA-Public Use
  Company Number: None

PATIENT
  Age: 37 Year
  Sex: Female

DRUGS (56)
  1. CEFUROXIME [Suspect]
     Active Substance: CEFUROXIME
     Indication: Cystitis
     Dosage: UNK
     Route: 065
     Dates: start: 201505
  2. CEFUROXIME [Suspect]
     Active Substance: CEFUROXIME
     Dosage: UNK
     Route: 065
     Dates: start: 20150501
  3. SIMVASTATIN [Suspect]
     Active Substance: SIMVASTATIN
     Indication: Hypercholesterolaemia
     Dosage: 20 MILLIGRAM
     Route: 065
     Dates: end: 2015
  4. SIMVASTATIN [Suspect]
     Active Substance: SIMVASTATIN
     Dosage: 25 MILLIGRAM
     Route: 065
  5. ASPIRIN [Suspect]
     Active Substance: ASPIRIN
     Indication: Prophylaxis
     Dosage: 75 MILLIGRAM, ONCE A DAY
     Route: 048
  6. ASPIRIN [Suspect]
     Active Substance: ASPIRIN
     Dosage: 75 MILLIGRAM, ONCE A DAY
     Route: 048
     Dates: start: 201503
  7. ASPIRIN [Suspect]
     Active Substance: ASPIRIN
     Dosage: 75 MILLIGRAM, ONCE A DAY
     Route: 048
     Dates: start: 20150301
  8. ALFACALCIDOL [Suspect]
     Active Substance: ALFACALCIDOL
     Indication: Hyperparathyroidism
     Dosage: 0.25 MICROGRAM, ONCE A DAY
     Route: 065
  9. ASCORBIC ACID [Suspect]
     Active Substance: ASCORBIC ACID
     Indication: Product used for unknown indication
     Dosage: UNK UNK, ONCE A DAY
     Route: 048
     Dates: start: 201503
  10. EPOETIN BETA [Suspect]
     Active Substance: ERYTHROPOIETIN
     Indication: Product used for unknown indication
     Dosage: 2000 INTERNATIONAL UNIT, EVERY WEEK,AFTER EACH DIALYSIS
     Route: 058
  11. EPOETIN BETA [Suspect]
     Active Substance: ERYTHROPOIETIN
     Dosage: 4000 INTERNATIONAL UNIT, EVERY WEEK
     Route: 058
     Dates: start: 201508
  12. EPOETIN BETA [Suspect]
     Active Substance: ERYTHROPOIETIN
     Dosage: EVERY WEEK,AFTER EACH DIALYSIS
     Route: 058
  13. ERYTHROPOIETIN [Suspect]
     Active Substance: ERYTHROPOIETIN
     Indication: Product used for unknown indication
     Dosage: 2000 IU, AFTER EACH DIALYSIS
     Route: 058
  14. ERYTHROPOIETIN [Suspect]
     Active Substance: ERYTHROPOIETIN
     Dosage: 2000 INTERNATIONAL UNIT, EVERY WEEK(AFTER EACH DIALYSIS)
     Route: 065
  15. ERYTHROPOIETIN [Suspect]
     Active Substance: ERYTHROPOIETIN
     Dosage: 4000 INTERNATIONAL UNIT, EVERY WEEK
     Route: 058
     Dates: start: 20150801
  16. ERYTHROPOIETIN [Suspect]
     Active Substance: ERYTHROPOIETIN
     Dosage: 4000 INTERNATIONAL UNIT, EVERY WEEK, AFTER EACH DIALYSIS
     Route: 058
  17. FERRIC MALTOL [Suspect]
     Active Substance: FERRIC MALTOL
     Indication: Product used for unknown indication
     Dosage: 100 MILLIGRAM
     Route: 048
     Dates: start: 201408
  18. FERRIC MALTOL [Suspect]
     Active Substance: FERRIC MALTOL
     Dosage: UNK
     Route: 048
     Dates: start: 201503
  19. FERINJECT [Suspect]
     Active Substance: FERRIC CARBOXYMALTOSE
     Indication: Product used for unknown indication
     Dosage: 50 MILLIGRAM PER MILLILITRE
     Route: 042
  20. FERINJECT [Suspect]
     Active Substance: FERRIC CARBOXYMALTOSE
     Dosage: 100 MILLIGRAM
     Route: 042
     Dates: start: 201408, end: 201408
  21. FERINJECT [Suspect]
     Active Substance: FERRIC CARBOXYMALTOSE
     Dosage: 50 MILLIGRAM
     Route: 042
     Dates: start: 201408
  22. FOLIC ACID [Suspect]
     Active Substance: FOLIC ACID
     Indication: Product used for unknown indication
     Dosage: 15 MILLIGRAM, ONCE A DAY
     Route: 048
  23. FOLIC ACID [Suspect]
     Active Substance: FOLIC ACID
     Dosage: 15 MILLIGRAM, ONCE A DAY
     Route: 048
     Dates: start: 201503
  24. FOLIC ACID [Suspect]
     Active Substance: FOLIC ACID
     Dosage: 15 MILLIGRAM, ONCE A DAY
     Route: 048
     Dates: start: 20150301
  25. HEPARIN [Suspect]
     Active Substance: HEPARIN SODIUM
     Indication: Anticoagulant therapy
     Dosage: UNK
     Route: 065
  26. IRON DEXTRAN [Suspect]
     Active Substance: IRON DEXTRAN
     Indication: Product used for unknown indication
     Dosage: 100 MILLIGRAM, EVERY WEEK
     Route: 042
  27. IRON DEXTRAN [Suspect]
     Active Substance: IRON DEXTRAN
     Dosage: UNK
     Route: 042
     Dates: start: 201408
  28. IRON DEXTRAN [Suspect]
     Active Substance: IRON DEXTRAN
     Dosage: 100 MILLIGRAM, EVERY WEEK
     Route: 048
     Dates: start: 201408
  29. IRON DEXTRAN [Suspect]
     Active Substance: IRON DEXTRAN
     Dosage: UNK
     Route: 048
     Dates: start: 201503
  30. IRON [Suspect]
     Active Substance: IRON
     Indication: Product used for unknown indication
     Dosage: 100 MILLIGRAM, (100 MG, QW, WEEKLY)
     Route: 042
     Dates: start: 201408
  31. IRON [Suspect]
     Active Substance: IRON
     Dosage: 100 MILLIGRAM (DISCONTINUED)
     Route: 042
  32. IRON [Suspect]
     Active Substance: IRON
     Dosage: UNK
     Route: 042
  33. IRON [Suspect]
     Active Substance: IRON
     Indication: Product used for unknown indication
     Dosage: UNK
     Route: 048
  34. IRON [Suspect]
     Active Substance: IRON
     Dosage: 100 MILLIGRAM, EVERY WEEK
     Route: 048
     Dates: start: 201408
  35. IRON [Suspect]
     Active Substance: IRON
     Dosage: UNK, DISCONTINUED
     Route: 048
     Dates: start: 201503
  36. LEVOTHYROXINE SODIUM [Suspect]
     Active Substance: LEVOTHYROXINE SODIUM
     Indication: Hypothyroidism
     Dosage: 25 MICROGRAM, ONCE A DAY
     Route: 065
  37. LEVOTHYROXINE SODIUM [Suspect]
     Active Substance: LEVOTHYROXINE SODIUM
     Dosage: 25 MICROGRAM/MILLILITER, ONCE A DAY
     Route: 065
     Dates: start: 201505
  38. LEVOTHYROXINE SODIUM [Suspect]
     Active Substance: LEVOTHYROXINE SODIUM
     Dosage: 25 MICROGRAM, ONCE A DAY
     Route: 065
     Dates: start: 20150501
  39. METHYLDOPA [Suspect]
     Active Substance: METHYLDOPA
     Indication: Hypertension
     Dosage: 1 DOSAGE FORM, 3 TIMES A DAY
     Route: 065
     Dates: start: 20150301
  40. METHYLDOPA [Suspect]
     Active Substance: METHYLDOPA
     Dosage: 1 DOSAGE FORM, ONCE A DAY
     Route: 065
     Dates: start: 20150301
  41. METHYLDOPA [Suspect]
     Active Substance: METHYLDOPA
     Dosage: UNK
     Route: 065
     Dates: start: 201505
  42. METHYLDOPA [Suspect]
     Active Substance: METHYLDOPA
     Dosage: 1 MICROGRAM PER LITRE, 3 X 1 TABLET
     Route: 065
  43. IRON POLYMALTOSE [Suspect]
     Active Substance: IRON POLYMALTOSE
     Indication: Product used for unknown indication
     Dosage: 100 MILLIGRAM, EVERY WEEK
     Route: 048
     Dates: start: 201408
  44. IRON POLYMALTOSE [Suspect]
     Active Substance: IRON POLYMALTOSE
     Dosage: 100 MILLIGRAM, EVERY WEEK
     Route: 048
     Dates: start: 201503, end: 201503
  45. SPIRAMYCIN [Suspect]
     Active Substance: SPIRAMYCIN
     Indication: Toxoplasmosis
     Dosage: UNK, AFTER EACH DIALYSIS
     Route: 065
  46. SPIRAMYCIN [Suspect]
     Active Substance: SPIRAMYCIN
     Indication: Cystitis
     Dosage: UNK
     Route: 065
     Dates: start: 201505
  47. SPIRAMYCIN [Suspect]
     Active Substance: SPIRAMYCIN
     Dosage: UNK
     Route: 065
     Dates: start: 20150501
  48. TORSEMIDE [Suspect]
     Active Substance: TORSEMIDE
     Indication: Hypertension
     Dosage: 2.5 MILLIGRAM, ONCE A DAY
     Route: 065
  49. TORSEMIDE [Suspect]
     Active Substance: TORSEMIDE
     Dosage: 2.5 MILLIGRAM
     Route: 065
  50. VENOFER [Suspect]
     Active Substance: IRON SUCROSE
     Indication: Product used for unknown indication
     Dosage: 100 MILLIGRAM
     Route: 048
     Dates: start: 201408
  51. VENOFER [Suspect]
     Active Substance: IRON SUCROSE
     Dosage: 100 MILLIGRAM, EVERY WEEK
     Route: 042
     Dates: start: 201408
  52. VENOFER [Suspect]
     Active Substance: IRON SUCROSE
     Dosage: UNK
     Route: 048
     Dates: start: 201503
  53. VITAMIN D3 [Concomitant]
     Active Substance: CHOLECALCIFEROL
     Indication: Product used for unknown indication
     Dosage: UNK
     Route: 065
  54. ASCORBIC ACID [Concomitant]
     Active Substance: ASCORBIC ACID
     Indication: Product used for unknown indication
     Dosage: UNK, AFTER EACH DIALYSIS
     Route: 048
     Dates: start: 201503
  55. COLECALCIFEROL;RISEDRONIC ACID [Concomitant]
     Indication: Product used for unknown indication
     Dosage: UNK
     Route: 065
  56. RISEDRONIC ACID [Concomitant]
     Active Substance: RISEDRONIC ACID
     Indication: Product used for unknown indication
     Dosage: UNK
     Route: 065

REACTIONS (14)
  - Exposure during pregnancy [Unknown]
  - Live birth [Unknown]
  - Premature delivery [Unknown]
  - Haematocrit decreased [Unknown]
  - Cystitis [Unknown]
  - Toxoplasmosis [Unknown]
  - Oedema peripheral [Unknown]
  - Haemoglobin decreased [Unknown]
  - Hypothyroidism [Unknown]
  - Blood albumin decreased [Unknown]
  - Premature rupture of membranes [Unknown]
  - Off label use [Unknown]
  - Contraindicated product administered [Unknown]
  - Maternal exposure during pregnancy [Unknown]

NARRATIVE: CASE EVENT DATE: 20150501
